FAERS Safety Report 10085205 (Version 1)
Quarter: 2014Q2

REPORT INFORMATION
  Report Type: Report from Study
  Country: US (occurrence: US)
  Receive Date: 20140417
  Receipt Date: 20140417
  Transmission Date: 20141212
  Serious: Yes (Hospitalization, Disabling, Other)
  Sender: FDA-Public Use
  Company Number: US-ABBVIE-14P-163-1223852-00

PATIENT
  Sex: Male
  Weight: 81.27 kg

DRUGS (20)
  1. HUMIRA [Suspect]
     Indication: RHEUMATOID ARTHRITIS
     Route: 058
     Dates: start: 2011, end: 201307
  2. HUMIRA [Suspect]
     Route: 058
     Dates: start: 201307
  3. ALLOPURINOL [Concomitant]
     Indication: GOUT
  4. ALLOPURINOL [Concomitant]
     Indication: PROPHYLAXIS
  5. ABILIFY [Concomitant]
     Indication: DEPRESSION
     Dates: start: 2014
  6. CALCIUM CITRATE [Concomitant]
     Indication: VITAMIN SUPPLEMENTATION
  7. VITAMIN D [Concomitant]
     Indication: VITAMIN SUPPLEMENTATION
  8. PRADAXA [Concomitant]
     Indication: CEREBROVASCULAR ACCIDENT PROPHYLAXIS
  9. DILTIAZEM [Concomitant]
     Indication: ATRIAL FIBRILLATION
  10. FOLIC ACID [Concomitant]
     Indication: VITAMIN SUPPLEMENTATION
  11. METHOCARBAMOL [Concomitant]
     Indication: MUSCLE SPASMS
     Dosage: 1 IN 6 HOURS AS NEEDED
  12. METOPROLOL [Concomitant]
     Indication: HYPERTENSION
  13. NICOTINE [Concomitant]
     Indication: EX-TOBACCO USER
  14. NICOTINE LOZENGES [Concomitant]
     Indication: EX-TOBACCO USER
  15. ONDANSETRON [Concomitant]
     Indication: NAUSEA
     Dosage: 1 IN 6 HOURS PRN
  16. OXYCODONE [Concomitant]
     Indication: POSTOPERATIVE ANALGESIA
     Dosage: 1 IN 6 HOURS PRN
     Dates: start: 2014
  17. OXYCODONE [Concomitant]
     Indication: POSTOPERATIVE ANALGESIA
     Dates: start: 2014
  18. PRAVASTATIN [Concomitant]
     Indication: BLOOD CHOLESTEROL INCREASED
  19. PREDNISONE [Concomitant]
     Indication: RHEUMATOID ARTHRITIS
  20. RANITIDINE [Concomitant]
     Indication: ABDOMINAL PAIN UPPER

REACTIONS (11)
  - Gait disturbance [Not Recovered/Not Resolved]
  - Fall [Recovering/Resolving]
  - Cervical vertebral fracture [Recovered/Resolved]
  - Spinal fracture [Recovering/Resolving]
  - Contusion [Recovered/Resolved]
  - Confusional state [Recovered/Resolved]
  - Joint stiffness [Not Recovered/Not Resolved]
  - Musculoskeletal pain [Not Recovered/Not Resolved]
  - Arthralgia [Not Recovered/Not Resolved]
  - Back pain [Not Recovered/Not Resolved]
  - Weight decreased [Not Recovered/Not Resolved]
